FAERS Safety Report 17284110 (Version 1)
Quarter: 2020Q1

REPORT INFORMATION
  Report Type: Spontaneous
  Country: US (occurrence: US)
  Receive Date: 20200117
  Receipt Date: 20200117
  Transmission Date: 20200409
  Serious: No
  Sender: FDA-Public Use
  Company Number: US-JACOBUS PHARMACEUTICAL COMPANY, INC.-2079128

PATIENT
  Sex: Male

DRUGS (1)
  1. PASER [Suspect]
     Active Substance: AMINOSALICYLIC ACID

REACTIONS (2)
  - Vomiting [Unknown]
  - Nausea [Unknown]
